FAERS Safety Report 4759203-9 (Version None)
Quarter: 2005Q3

REPORT INFORMATION
  Report Type: 
  Country: None (occurrence: None)
  Receive Date: 20050831
  Receipt Date: 20050826
  Transmission Date: 20060218
  Serious: Yes (Death)
  Sender: FDA-Public Use
  Company Number: 200512608GDS

PATIENT
  Age: 63 Year
  Sex: Male
  Weight: 58 kg

DRUGS (4)
  1. AVELOX [Suspect]
     Indication: CARDIAC FAILURE CONGESTIVE
     Dosage: 400 MG, TOTAL DAILY, INTRAVENOUS
     Route: 042
     Dates: start: 20050406
  2. NORPIN [Concomitant]
  3. DOPAMINE [Concomitant]
  4. DOBUTAMINE HCL [Concomitant]

REACTIONS (3)
  - BUNDLE BRANCH BLOCK [None]
  - CARDIAC ARREST [None]
  - ELECTROCARDIOGRAM Q WAVES [None]
